FAERS Safety Report 14146432 (Version 2)
Quarter: 2017Q4

REPORT INFORMATION
  Report Type: Other
  Country: FR (occurrence: FR)
  Receive Date: 20171031
  Receipt Date: 20171107
  Transmission Date: 20180321
  Serious: Yes (Hospitalization, Other)
  Sender: FDA-Public Use
  Company Number: FR-ARBOR PHARMACEUTICALS, LLC-FR-2017ARB000962

PATIENT
  Age: 30 Year
  Sex: Female

DRUGS (5)
  1. TRIPTODUR [Suspect]
     Active Substance: TRIPTORELIN
     Indication: ASSISTED FERTILISATION
     Dosage: 2 DF, SINGLE
     Route: 058
     Dates: start: 20170422, end: 20170422
  2. LUTEINISING HORMONE (HUMAN) [Suspect]
     Active Substance: LUTROPIN ALFA
     Indication: ASSISTED FERTILISATION
     Dosage: 450 IU, UNK
     Route: 058
     Dates: start: 20170414, end: 20170421
  3. CETROTIDE [Suspect]
     Active Substance: CETRORELIX ACETATE
     Indication: ASSISTED FERTILISATION
     Dosage: 0.25 MG, UNK
     Route: 058
     Dates: start: 20170418, end: 20170422
  4. CHORIONIC GONADOTROPIN [Suspect]
     Active Substance: CHORIOGONADOTROPIN ALFA
     Indication: ASSISTED FERTILISATION
     Dosage: 1000 IU, SINGLE
     Route: 030
     Dates: start: 20170422, end: 20170422
  5. UROFOLLITROPIN [Suspect]
     Active Substance: UROFOLLITROPIN
     Indication: ASSISTED FERTILISATION

REACTIONS (4)
  - Peritoneal haemorrhage [Recovered/Resolved]
  - Off label use [Unknown]
  - Thrombosis [Unknown]
  - Incorrect dose administered [Unknown]

NARRATIVE: CASE EVENT DATE: 201704
